FAERS Safety Report 6356657-1 (Version None)
Quarter: 2009Q3

REPORT INFORMATION
  Report Type: 
  Country: None (occurrence: None)
  Receive Date: 20090914
  Receipt Date: 20090914
  Transmission Date: 20100115
  Serious: Yes (Hospitalization, Other)
  Sender: FDA-Public Use
  Company Number: None

PATIENT
  Age: 36 Week
  Sex: Female
  Weight: 2.27 kg

DRUGS (4)
  1. ONDANSETRON [Suspect]
     Dosage: 4 MG TWICE A DAY
  2. CITALOPRAM HYDROBROMIDE [Suspect]
     Dosage: 40 MG DAILY
  3. URSODIL [Concomitant]
  4. RANITIDINE (ZANTAC) [Concomitant]

REACTIONS (9)
  - APGAR SCORE ABNORMAL [None]
  - DRUG WITHDRAWAL SYNDROME NEONATAL [None]
  - HYPERTONIA [None]
  - HYPERTONIA NEONATAL [None]
  - LATE METABOLIC ACIDOSIS OF NEWBORN [None]
  - MATERNAL DRUGS AFFECTING FOETUS [None]
  - NEONATAL RESPIRATORY DEPRESSION [None]
  - PUPILLARY REFLEX IMPAIRED [None]
  - TARDIVE DYSKINESIA [None]
